FAERS Safety Report 10762944 (Version 1)
Quarter: 2015Q1

REPORT INFORMATION
  Report Type: Spontaneous
  Country: DE (occurrence: DE)
  Receive Date: 20150204
  Receipt Date: 20150204
  Transmission Date: 20150721
  Serious: Yes (Congenital Anomaly, Other)
  Sender: FDA-Public Use
  Company Number: DE-WATSON-2015-01044

PATIENT
  Age: 1 Day
  Sex: Female
  Weight: 3.55 kg

DRUGS (4)
  1. CLOTRIMAZOLE. [Concomitant]
     Active Substance: CLOTRIMAZOLE
     Indication: VULVOVAGINAL MYCOTIC INFECTION
     Dosage: UNK
     Route: 064
     Dates: start: 20140222, end: 20140225
  2. CITALOPRAM [Suspect]
     Active Substance: CITALOPRAM HYDROBROMIDE
     Indication: DEPRESSION
     Dosage: 40 MG, DAILY
     Route: 064
     Dates: start: 20131004, end: 20140711
  3. MAGNESIUM [Concomitant]
     Active Substance: MAGNESIUM
     Indication: SELF-MEDICATION
     Dosage: 525 MG, DAILY
     Route: 064
     Dates: start: 20140522, end: 20140701
  4. FOLIC ACID. [Concomitant]
     Active Substance: FOLIC ACID
     Indication: PROPHYLAXIS OF NEURAL TUBE DEFECT
     Dosage: 0.4 MG, DAILY
     Route: 064
     Dates: start: 20131004, end: 20140722

REACTIONS (3)
  - Oxygen saturation abnormal [Recovered/Resolved]
  - Foetal exposure during pregnancy [Not Recovered/Not Resolved]
  - Kidney duplex [Not Recovered/Not Resolved]

NARRATIVE: CASE EVENT DATE: 20140722
